FAERS Safety Report 7973935-0 (Version None)
Quarter: 2011Q4

REPORT INFORMATION
  Report Type: 
  Country: None (occurrence: None)
  Receive Date: 20111213
  Receipt Date: 20111129
  Transmission Date: 20120403
  Serious: Yes (Hospitalization, Disabling, Other)
  Sender: FDA-Public Use
  Company Number: IT-ROCHE-729635

PATIENT
  Sex: Female
  Weight: 46 kg

DRUGS (39)
  1. DARBEPOETIN ALFA [Suspect]
     Indication: NEPHROGENIC ANAEMIA
     Dosage: NURSE MISTAKE ON 15 DEC 2010, DARBEPOTIN ALFA (BATCH 1016812) WAS ADMINISTERED.
     Route: 065
     Dates: start: 20101215, end: 20101215
  2. TEMISARTAN [Concomitant]
  3. LANTHANUM CARBONATE [Concomitant]
  4. IMATINIB MESYLATE [Concomitant]
     Dates: start: 20110113
  5. CARVEDILOL [Concomitant]
  6. METOPROLOL TARTRATE [Concomitant]
  7. METOPROLOL TARTRATE [Concomitant]
  8. ALLOPURINOL [Concomitant]
  9. ASPIRIN [Concomitant]
     Dates: start: 20091226
  10. CILOSTAZOL [Concomitant]
     Dates: start: 20111031
  11. MIRCERA [Suspect]
     Dosage: LAST DOSE PRIOR TO SAE: 14 JANUARY 2011.
     Route: 042
  12. MIRCERA [Suspect]
     Route: 042
  13. ASPIRIN [Concomitant]
  14. DIGOXIN [Concomitant]
     Dosage: TDD: 625 GU
     Dates: start: 20100702, end: 20101124
  15. PARICALCITOL [Concomitant]
     Dosage: REPORTED AS PARACALCITOL
  16. PRAVASTATIN [Concomitant]
  17. TICLOPIDINE HCL [Concomitant]
     Dates: start: 20111031
  18. DALTEPARIN SODIUM [Concomitant]
     Dates: start: 20111003
  19. MIRCERA [Suspect]
     Indication: NEPHROGENIC ANAEMIA
     Dosage: LAST DOSE PRIOR TO SAE: 16 JUNE 2010, DOSAGE FORM: PFS
     Route: 042
  20. VERAPAMIL [Concomitant]
  21. RISEDRONIC ACID [Concomitant]
  22. RISEDRONIC ACID [Concomitant]
  23. AMLODIPINE [Concomitant]
  24. RANITIDINE [Concomitant]
     Dates: start: 20111031
  25. MIRCERA [Suspect]
     Dosage: LAST DOSE PRIOR TO SAE:15 NOVEMBER 2010, DOSAGE FORM: PFS
     Route: 042
  26. LANSOPRAZOLE [Concomitant]
  27. PREDNISONE TAB [Concomitant]
  28. SEVELAMER [Concomitant]
  29. SEVELAMER [Concomitant]
  30. TEMISARTAN [Concomitant]
  31. IRON GLUCONATE [Concomitant]
  32. ACETAMINOPHEN [Concomitant]
  33. MIRCERA [Suspect]
     Dosage: LAST DOSE PRIOR TO SAE: 15 AUG 2011
     Route: 042
  34. FUROSEMIDE [Concomitant]
  35. L-CARNITINE [Concomitant]
     Dates: start: 20100906
  36. ATORVASTATIN CALCIUM [Concomitant]
  37. CLOPIDOGREL [Concomitant]
  38. SEVELAMER CARBONATE [Concomitant]
  39. VYTORIN [Concomitant]
     Dosage: 10/20 MG DAILY
     Dates: start: 20111116

REACTIONS (13)
  - LETHARGY [None]
  - ATRIAL FIBRILLATION [None]
  - MYOCARDIAL INFARCTION [None]
  - WRONG DRUG ADMINISTERED [None]
  - MYOCARDIAL ISCHAEMIA [None]
  - DELIRIUM [None]
  - IN-STENT CORONARY ARTERY RESTENOSIS [None]
  - HAEMOGLOBIN DECREASED [None]
  - SPINAL COMPRESSION FRACTURE [None]
  - CEREBRAL ISCHAEMIA [None]
  - CONFUSIONAL STATE [None]
  - CHRONIC MYELOID LEUKAEMIA [None]
  - ANGINA PECTORIS [None]
